FAERS Safety Report 12347630 (Version 1)
Quarter: 2016Q2

REPORT INFORMATION
  Report Type: Spontaneous
  Country: IN (occurrence: IN)
  Receive Date: 20160509
  Receipt Date: 20160509
  Transmission Date: 20160815
  Serious: Yes (Life-Threatening)
  Sender: FDA-Public Use
  Company Number: IN-WATSON-2016-09293

PATIENT
  Age: 50 Year
  Sex: Female

DRUGS (9)
  1. DOXORUBICIN [Concomitant]
     Active Substance: DOXORUBICIN
     Indication: BREAST CANCER STAGE III
     Dosage: UNK
     Route: 065
  2. TAMOXIFEN (UNKNOWN) [Suspect]
     Active Substance: TAMOXIFEN
     Indication: BREAST CANCER STAGE III
  3. FLUOROURACIL. [Concomitant]
     Active Substance: FLUOROURACIL
     Indication: BREAST CANCER STAGE III
  4. DOXORUBICIN [Concomitant]
     Active Substance: DOXORUBICIN
     Indication: OESTROGEN RECEPTOR POSITIVE BREAST CANCER
  5. FLUOROURACIL. [Concomitant]
     Active Substance: FLUOROURACIL
     Indication: OESTROGEN RECEPTOR POSITIVE BREAST CANCER
     Dosage: UNK
     Route: 065
  6. CYCLOPHOSPHAMIDE. [Concomitant]
     Active Substance: CYCLOPHOSPHAMIDE
     Indication: OESTROGEN RECEPTOR POSITIVE BREAST CANCER
  7. TAMOXIFEN (UNKNOWN) [Suspect]
     Active Substance: TAMOXIFEN
     Indication: OESTROGEN RECEPTOR POSITIVE BREAST CANCER
     Dosage: 20 MG, QHS
     Route: 065
  8. CYCLOPHOSPHAMIDE. [Concomitant]
     Active Substance: CYCLOPHOSPHAMIDE
     Indication: BREAST CANCER STAGE III
     Dosage: UNK
     Route: 065
  9. METFORMIN [Concomitant]
     Active Substance: METFORMIN HYDROCHLORIDE
     Indication: DIABETES MELLITUS
     Dosage: 500 MG, BID
     Route: 065

REACTIONS (2)
  - Pancreatitis acute [Recovered/Resolved]
  - Hypertriglyceridaemia [Recovered/Resolved]
